FAERS Safety Report 7021129-8 (Version None)
Quarter: 2010Q3

REPORT INFORMATION
  Report Type: 
  Country: None (occurrence: None)
  Receive Date: 20100929
  Receipt Date: 20100922
  Transmission Date: 20110219
  Serious: Yes (Disabling, Other)
  Sender: FDA-Public Use
  Company Number: US-PFIZER INC-2009301167

PATIENT
  Sex: Male
  Weight: 108.84 kg

DRUGS (10)
  1. LIPITOR [Suspect]
     Indication: BLOOD CHOLESTEROL INCREASED
     Dosage: 80 MG, 1X/DAY
     Route: 048
  2. LIPITOR [Suspect]
     Dosage: 40 MG, 1X/DAY
     Dates: start: 19990101
  3. FENOFIBRATE [Concomitant]
     Dosage: UNK
  4. OMEPRAZOLE [Concomitant]
     Dosage: UNK
  5. CARVEDILOL [Concomitant]
     Dosage: UNK
  6. PREDNISONE [Concomitant]
     Dosage: UNK
  7. ENALAPRIL [Concomitant]
     Dosage: UNK
  8. MINOCYCLINE HCL [Concomitant]
     Dosage: UNK
  9. IMURAN [Concomitant]
     Dosage: UNK
  10. RAPAMUNE [Concomitant]
     Dosage: UNK

REACTIONS (7)
  - BLOOD CHOLESTEROL INCREASED [None]
  - DRUG INEFFECTIVE [None]
  - HEART TRANSPLANT [None]
  - HIGH DENSITY LIPOPROTEIN ABNORMAL [None]
  - LOW DENSITY LIPOPROTEIN ABNORMAL [None]
  - LUNG DISORDER [None]
  - MYOCARDIAL INFARCTION [None]
